FAERS Safety Report 7266836-7 (Version None)
Quarter: 2011Q1

REPORT INFORMATION
  Report Type: 
  Country: None (occurrence: None)
  Receive Date: 20110121
  Receipt Date: 20110106
  Transmission Date: 20110831
  Serious: Yes (Other)
  Sender: FDA-Public Use
  Company Number: 2011SP001913

PATIENT
  Sex: Female

DRUGS (2)
  1. OXYMETAZOLINE HCL [Suspect]
     Indication: INFLUENZA
     Dosage: ONCE; NAS
     Route: 045
  2. OXYMETAZOLINE HCL [Suspect]
     Indication: SINUS CONGESTION
     Dosage: ONCE; NAS
     Route: 045

REACTIONS (6)
  - SWELLING FACE [None]
  - NASAL OEDEMA [None]
  - EPISTAXIS [None]
  - BURNING SENSATION [None]
  - BLOOD PRESSURE INCREASED [None]
  - BLISTER [None]
